FAERS Safety Report 17509892 (Version 2)
Quarter: 2020Q1

REPORT INFORMATION
  Report Type: Spontaneous
  Country: US (occurrence: US)
  Receive Date: 20200306
  Receipt Date: 20200325
  Transmission Date: 20200409
  Serious: Yes (Other)
  Sender: FDA-Public Use
  Company Number: US-LUNDBECK-DKLU3013314

PATIENT
  Age: 68 Year
  Sex: Female
  Weight: 66 kg

DRUGS (7)
  1. DIAZEPAM. [Suspect]
     Active Substance: DIAZEPAM
     Indication: PRODUCT USED FOR UNKNOWN INDICATION
     Route: 065
  2. BENICAR [Concomitant]
     Active Substance: OLMESARTAN MEDOXOMIL
     Indication: PRODUCT USED FOR UNKNOWN INDICATION
     Route: 065
  3. CHLORAZEPATE [Concomitant]
     Active Substance: CLORAZEPATE DIPOTASSIUM
     Indication: PRODUCT USED FOR UNKNOWN INDICATION
     Route: 065
  4. ONFI [Suspect]
     Active Substance: CLOBAZAM
     Route: 048
     Dates: end: 202001
  5. CORGARD [Concomitant]
     Active Substance: NADOLOL
     Indication: PRODUCT USED FOR UNKNOWN INDICATION
     Route: 065
  6. ONFI [Suspect]
     Active Substance: CLOBAZAM
     Indication: DEPRESSION
     Route: 048
     Dates: end: 202001
  7. ONFI [Suspect]
     Active Substance: CLOBAZAM
     Indication: ANXIETY
     Route: 048
     Dates: start: 201911

REACTIONS (22)
  - Hallucination [Recovered/Resolved]
  - Dry throat [Recovered/Resolved]
  - Feeling abnormal [Unknown]
  - Alopecia [Recovering/Resolving]
  - Asthenia [Recovered/Resolved]
  - Weight decreased [Recovered/Resolved]
  - Palpitations [Unknown]
  - Blood pressure increased [Unknown]
  - Decreased appetite [Recovered/Resolved]
  - Scab [Unknown]
  - Insomnia [Unknown]
  - Tremor [Recovered/Resolved]
  - Memory impairment [Unknown]
  - Nausea [Recovered/Resolved]
  - Off label use [Recovered/Resolved]
  - Glycosylated haemoglobin increased [Recovered/Resolved]
  - Acne [Recovered/Resolved]
  - Dyskinesia [Recovered/Resolved]
  - Dry skin [Unknown]
  - Dry mouth [Unknown]
  - Blister [Recovered/Resolved]
  - Pruritus [Unknown]

NARRATIVE: CASE EVENT DATE: 201911
